FAERS Safety Report 9344787 (Version 1)
Quarter: 2013Q2

REPORT INFORMATION
  Report Type: Spontaneous
  Country: BR (occurrence: BR)
  Receive Date: 20130612
  Receipt Date: 20130612
  Transmission Date: 20140414
  Serious: Yes (Hospitalization, Other)
  Sender: FDA-Public Use
  Company Number: BR-ASTRAZENECA-2013SE41003

PATIENT
  Age: 67 Year
  Sex: Female
  Weight: 83 kg

DRUGS (7)
  1. CRESTOR [Suspect]
     Indication: BLOOD CHOLESTEROL INCREASED
     Route: 048
     Dates: start: 2008, end: 201209
  2. CRESTOR [Suspect]
     Indication: BLOOD CHOLESTEROL INCREASED
     Route: 048
     Dates: start: 201209
  3. BRILINTA [Suspect]
     Route: 048
     Dates: start: 201209
  4. CORUS [Concomitant]
     Indication: HYPERTENSION
     Dates: start: 2011
  5. CARDIZEN [Concomitant]
     Indication: CARDIAC DISORDER
  6. SOMALGIN [Concomitant]
     Indication: ANTICOAGULANT THERAPY
     Dates: start: 201209
  7. TICLID [Concomitant]
     Indication: ANTICOAGULANT THERAPY
     Dates: end: 2012

REACTIONS (3)
  - Vascular graft occlusion [Recovered/Resolved]
  - Hypertension [Recovered/Resolved]
  - Rash erythematous [Not Recovered/Not Resolved]
